FAERS Safety Report 5716157-6 (Version None)
Quarter: 2008Q2

REPORT INFORMATION
  Report Type: 
  Country: None (occurrence: None)
  Receive Date: 20080424
  Receipt Date: 20080418
  Transmission Date: 20081010
  Serious: Yes (Other)
  Sender: FDA-Public Use
  Company Number: PHEH2008US01615

PATIENT
  Age: 46 Year
  Sex: Female

DRUGS (11)
  1. ZOMETA [Suspect]
     Indication: BREAST CANCER METASTATIC
     Dosage: 4 MG, ONCE/SINGLE
     Dates: start: 20071121, end: 20071121
  2. ZOMETA [Suspect]
     Dosage: 4 MG, UNK
     Dates: start: 20020601, end: 20070401
  3. XELODA [Concomitant]
  4. AVASTIN [Concomitant]
  5. ABRAXANE [Concomitant]
     Indication: BREAST CANCER
     Dosage: 100 MG/M2, UNK
     Dates: start: 20071101, end: 20080101
  6. NAVELBINE [Concomitant]
     Indication: BREAST CANCER
     Dosage: 25 MG/M2, UNK
     Dates: start: 20070901, end: 20071001
  7. DEXAMETHASONE TAB [Concomitant]
     Indication: PROPHYLAXIS
     Dosage: 10 MG PRE-MED
     Dates: start: 20051101, end: 20070801
  8. CARBOPLATIN [Concomitant]
     Indication: BREAST CANCER
     Dosage: AUC 6
     Dates: start: 20061201, end: 20070401
  9. ETOPOSIDE [Concomitant]
     Indication: BREAST CANCER
     Dosage: 100 MG/M2, UNK
     Dates: start: 20061201, end: 20070401
  10. DOXIL [Concomitant]
     Indication: BREAST CANCER
     Dosage: 40 MG/M2, UNK
     Dates: start: 20061001, end: 20061101
  11. ARIMIDEX [Concomitant]
     Indication: BREAST CANCER
     Dosage: FOR 2 YEARS

REACTIONS (3)
  - BONE DISORDER [None]
  - ORAL DISORDER [None]
  - OSTEONECROSIS [None]
